FAERS Safety Report 8998515 (Version 2)
Quarter: 2013Q1

REPORT INFORMATION
  Report Type: Report from Study
  Country: AR (occurrence: AR)
  Receive Date: 20130103
  Receipt Date: 20130114
  Transmission Date: 20140127
  Serious: Yes (Hospitalization, Other)
  Sender: FDA-Public Use
  Company Number: AR-ABBOTT-12P-007-1029031-00

PATIENT
  Age: 79 Year
  Sex: Female

DRUGS (2)
  1. HUMIRA [Suspect]
     Indication: RHEUMATOID ARTHRITIS
     Route: 058
     Dates: start: 20120509, end: 20121221
  2. HUMIRA [Suspect]
     Route: 058

REACTIONS (3)
  - Malnutrition [Recovered/Resolved]
  - Dementia [Recovered/Resolved]
  - Dehydration [Recovered/Resolved]
